FAERS Safety Report 13197700 (Version 1)
Quarter: 2017Q1

REPORT INFORMATION
  Report Type: Spontaneous
  Country: NO (occurrence: NO)
  Receive Date: 20170208
  Receipt Date: 20170208
  Transmission Date: 20170428
  Serious: Yes (Other)
  Sender: FDA-Public Use
  Company Number: NO-INDIVIOR LIMITED-INDV-098452-2017

PATIENT
  Age: 40 Year
  Sex: Male

DRUGS (1)
  1. SUBOXONE [Suspect]
     Active Substance: BUPRENORPHINE HYDROCHLORIDE\NALOXONE HYDROCHLORIDE
     Indication: PRODUCT USED FOR UNKNOWN INDICATION
     Dosage: UNK
     Route: 065

REACTIONS (11)
  - Decreased appetite [Unknown]
  - Visual impairment [Unknown]
  - Headache [Unknown]
  - Syncope [Unknown]
  - Anxiety [Unknown]
  - Malaise [Unknown]
  - Fine motor skill dysfunction [Unknown]
  - Weight decreased [Unknown]
  - Cold sweat [Unknown]
  - Depression [Unknown]
  - Dizziness [Unknown]
